FAERS Safety Report 4360073-1 (Version None)
Quarter: 2004Q2

REPORT INFORMATION
  Report Type: 
  Country: None (occurrence: None)
  Receive Date: 20040519
  Receipt Date: 20040511
  Transmission Date: 20050107
  Serious: Yes (Life-Threatening, Other)
  Sender: FDA-Public Use
  Company Number: JP-JNJFOC-20040301453

PATIENT
  Sex: Female

DRUGS (14)
  1. RISPERDAL [Suspect]
     Indication: DELUSION
     Route: 049
     Dates: start: 20040212, end: 20040228
  2. RISPERDAL [Suspect]
     Indication: HALLUCINATION
     Route: 049
     Dates: start: 20040212, end: 20040228
  3. NIFEDIPINE [Suspect]
     Route: 049
     Dates: start: 20040117, end: 20040228
  4. FUROSEMIDE [Suspect]
     Indication: CARDIAC FAILURE CONGESTIVE
     Route: 049
     Dates: start: 20040117, end: 20040228
  5. SPIRONOLACTONE [Suspect]
     Indication: CARDIAC FAILURE CONGESTIVE
     Route: 049
     Dates: start: 20040130, end: 20040228
  6. AMINOPHYLLINE [Suspect]
     Indication: DYSPNOEA
     Route: 041
     Dates: start: 20040204, end: 20040217
  7. TEICOPLANIN [Suspect]
     Indication: PNEUMONIA
     Route: 041
     Dates: start: 20040207, end: 20040217
  8. FLUNITRAZEPAM [Suspect]
     Indication: INSOMNIA
     Route: 049
     Dates: start: 20040213, end: 20040228
  9. BROMHEXINE  HYDROCHLORIDE [Concomitant]
     Route: 049
     Dates: start: 20040116, end: 20040228
  10. AMBROXAL HYDROCHLORIDE [Concomitant]
     Route: 049
     Dates: start: 20040116, end: 20040228
  11. PROTEINS, AMINO ACID AND PREPARATIONS [Concomitant]
     Route: 041
     Dates: start: 20040129, end: 20040217
  12. PANTHENOL [Concomitant]
     Route: 041
     Dates: start: 20040129, end: 20040217
  13. MAGNESIUM OXIDE [Concomitant]
     Route: 049
     Dates: start: 20040206, end: 20040228
  14. SODIUM PICOSULFATE [Concomitant]
     Route: 049
     Dates: start: 20040225, end: 20040228

REACTIONS (6)
  - AGRANULOCYTOSIS [None]
  - HAEMATOCRIT DECREASED [None]
  - HAEMOGLOBIN DECREASED [None]
  - INSOMNIA [None]
  - RED BLOOD CELL COUNT DECREASED [None]
  - STAPHYLOCOCCAL INFECTION [None]
